FAERS Safety Report 8760024 (Version 1)
Quarter: 2012Q4

REPORT INFORMATION
  Report Type: 
  Country: US (occurrence: US)
  Receive Date: 20120829
  Receipt Date: 20120829
  Transmission Date: 20130627
  Serious: Yes (Death)
  Sender: FDA-Public Use
  Company Number: PHEH2012US016825

PATIENT
  Age: 45 Year
  Sex: Female

DRUGS (1)
  1. TOBI [Suspect]
     Indication: BRONCHIECTASIS
     Dosage: 300 mg, BID

REACTIONS (1)
  - Death [Fatal]
